FAERS Safety Report 5206614-3 (Version None)
Quarter: 2006Q4

REPORT INFORMATION
  Report Type: 
  Country: None (occurrence: None)
  Receive Date: 20061026
  Receipt Date: 20060719
  Transmission Date: 20070319
  Serious: No
  Sender: FDA-Public Use
  Company Number: 2006091292

PATIENT
  Sex: Female

DRUGS (5)
  1. LYRICA [Suspect]
     Indication: HERPES ZOSTER
  2. NEURONTIN [Suspect]
     Indication: HERPES ZOSTER
  3. VALTREX [Suspect]
     Indication: HERPES ZOSTER
  4. ULTRAM [Suspect]
     Indication: HERPES ZOSTER
  5. VICODIN [Suspect]
     Indication: HERPES ZOSTER

REACTIONS (5)
  - BALANCE DISORDER [None]
  - DEPRESSION [None]
  - DIZZINESS [None]
  - HEART RATE INCREASED [None]
  - WEIGHT DECREASED [None]
